FAERS Safety Report 12252694 (Version 3)
Quarter: 2016Q3

REPORT INFORMATION
  Report Type: Spontaneous
  Country: US (occurrence: US)
  Receive Date: 20160411
  Receipt Date: 20160804
  Transmission Date: 20161109
  Serious: No
  Sender: FDA-Public Use
  Company Number: US-PFIZER INC-2016182676

PATIENT
  Sex: Female

DRUGS (1)
  1. PRISTIQ EXTENDED-RELEASE [Suspect]
     Active Substance: DESVENLAFAXINE SUCCINATE
     Dosage: 50 MG, UNK

REACTIONS (6)
  - Ocular hyperaemia [Unknown]
  - Eye swelling [Unknown]
  - Weight decreased [Unknown]
  - Malaise [Unknown]
  - Drug intolerance [Unknown]
  - Activities of daily living impaired [Unknown]
